FAERS Safety Report 5088136-6 (Version None)
Quarter: 2006Q3

REPORT INFORMATION
  Report Type: 
  Country: None (occurrence: None)
  Receive Date: 20060823
  Receipt Date: 20060823
  Transmission Date: 20061208
  Serious: No
  Sender: FDA-Public Use
  Company Number: None

PATIENT
  Age: 42 Year
  Sex: Female
  Weight: 83.9154 kg

DRUGS (1)
  1. TYLENOL EXTRA STRENGTH 500 MG MCNEIL PPC, INC, FORT [Suspect]
     Indication: PAIN
     Dosage: 2 CAPLETS EVERY 4-6 HOURS PO [1 DOSE]
     Route: 048
     Dates: start: 20060815, end: 20060815

REACTIONS (3)
  - GASTRIC DISORDER [None]
  - ORAL MUCOSAL BLISTERING [None]
  - POOR QUALITY DRUG ADMINISTERED [None]
